FAERS Safety Report 6070073-1 (Version None)
Quarter: 2009Q1

REPORT INFORMATION
  Report Type: 
  Country: None (occurrence: None)
  Receive Date: 20090127
  Receipt Date: 20090121
  Transmission Date: 20090719
  Serious: Yes (Hospitalization)
  Sender: FDA-Public Use
  Company Number: 200814245

PATIENT
  Age: 62 Year
  Sex: Female

DRUGS (11)
  1. VIVAGLOBIN [Suspect]
     Dosage: 4.8 G DAILY SC
     Route: 058
     Dates: start: 20080912, end: 20080912
  2. PREVISCAN [Concomitant]
  3. TEMERIT [Concomitant]
  4. COVERSYL/00790701/ [Concomitant]
  5. LASILIX [Concomitant]
  6. HYPERIUM [Concomitant]
  7. CRESTOR [Concomitant]
  8. PROZAC [Concomitant]
  9. LEXOMIL [Concomitant]
  10. NEORECORMON [Concomitant]
  11. FOSAMAX [Concomitant]

REACTIONS (7)
  - ABDOMINAL PAIN [None]
  - ABDOMINAL WALL HAEMATOMA [None]
  - AGITATION [None]
  - HAEMOGLOBIN DECREASED [None]
  - HAEMORRHAGE [None]
  - RED BLOOD CELL COUNT DECREASED [None]
  - TACHYCARDIA [None]
